FAERS Safety Report 8253759-X (Version None)
Quarter: 2012Q2

REPORT INFORMATION
  Report Type: 
  Country: None (occurrence: None)
  Receive Date: 20120402
  Receipt Date: 20120314
  Transmission Date: 20120825
  Serious: No
  Sender: FDA-Public Use
  Company Number: US-AMGEN-USASP2012016688

PATIENT
  Sex: Female

DRUGS (1)
  1. ENBREL [Suspect]
     Indication: RHEUMATOID ARTHRITIS
     Dosage: 50 MG, QWK
     Dates: start: 20100505, end: 20111001

REACTIONS (5)
  - NERVE INJURY [None]
  - NERVE COMPRESSION [None]
  - RHEUMATOID ARTHRITIS [None]
  - POOR PERIPHERAL CIRCULATION [None]
  - HEADACHE [None]
